FAERS Safety Report 20191195 (Version 2)
Quarter: 2021Q4

REPORT INFORMATION
  Report Type: Report from Study
  Country: US (occurrence: US)
  Receive Date: 20211216
  Receipt Date: 20211227
  Transmission Date: 20220303
  Serious: No
  Sender: FDA-Public Use
  Company Number: US-NOVARTISTESTPH-NVSC2021US287948

PATIENT
  Age: 91 Year
  Sex: Female

DRUGS (1)
  1. ENTRESTO [Suspect]
     Active Substance: SACUBITRIL\VALSARTAN
     Indication: Product used for unknown indication
     Dosage: 1 DOSAGE FORM, BID
     Route: 048
     Dates: start: 20211203

REACTIONS (8)
  - Dyspnoea [Unknown]
  - Pallor [Unknown]
  - Gait disturbance [Unknown]
  - Blood sodium increased [Unknown]
  - Peripheral swelling [Not Recovered/Not Resolved]
  - Musculoskeletal stiffness [Unknown]
  - Fatigue [Unknown]
  - Wrong technique in product usage process [Unknown]

NARRATIVE: CASE EVENT DATE: 20211204
